FAERS Safety Report 4668587-1 (Version None)
Quarter: 2005Q2

REPORT INFORMATION
  Report Type: 
  Country: None (occurrence: None)
  Receive Date: 20050519
  Receipt Date: 20050505
  Transmission Date: 20051028
  Serious: Yes (Death, Hospitalization)
  Sender: FDA-Public Use
  Company Number: 2005-00995

PATIENT
  Age: 58 Year
  Sex: Female

DRUGS (4)
  1. VELCADE [Suspect]
     Indication: MULTIPLE MYELOMA
     Dosage: 1.30 MG/M2, IV BOLUS
     Route: 040
     Dates: start: 20050401, end: 20050426
  2. ALLOPURINOL [Concomitant]
  3. MS CONTIN [Concomitant]
  4. DECADRON [Concomitant]

REACTIONS (3)
  - ABDOMINAL DISTENSION [None]
  - INTESTINAL INFARCTION [None]
  - SEPSIS [None]
